FAERS Safety Report 24828774 (Version 1)
Quarter: 2025Q1

REPORT INFORMATION
  Report Type: Spontaneous
  Country: US (occurrence: US)
  Receive Date: 20250110
  Receipt Date: 20250110
  Transmission Date: 20250409
  Serious: Yes (Other)
  Sender: AUROBINDO
  Company Number: US-MLMSERVICE-20241225-PI322461-00111-1

PATIENT
  Age: 45 Year
  Sex: Male

DRUGS (2)
  1. SULFAMETHOXAZOLE\TRIMETHOPRIM [Suspect]
     Active Substance: SULFAMETHOXAZOLE\TRIMETHOPRIM
     Indication: Urinary tract infection
     Dosage: 1 DOSAGE FORM, TWO TIMES A DAY (ONE DOUBLE-STRENGTH TABLET CONTAINING 800 MG SMX AND 160 MG TMP, TWI
     Route: 065
     Dates: start: 2016, end: 2016
  2. FLOMAX [Concomitant]
     Active Substance: TAMSULOSIN HYDROCHLORIDE
     Indication: Benign prostatic hyperplasia
     Route: 065
     Dates: start: 2016

REACTIONS (2)
  - Hepatotoxicity [Recovering/Resolving]
  - Drug-induced liver injury [Recovering/Resolving]

NARRATIVE: CASE EVENT DATE: 20160101
